FAERS Safety Report 9155469 (Version 1)
Quarter: 2013Q1

REPORT INFORMATION
  Report Type: Spontaneous
  Country: PT (occurrence: PT)
  Receive Date: 20130311
  Receipt Date: 20130311
  Transmission Date: 20140127
  Serious: Yes (Life-Threatening, Hospitalization, Congenital Anomaly, Other)
  Sender: FDA-Public Use
  Company Number: PT-WATSON-2013-03781

PATIENT
  Sex: Female

DRUGS (2)
  1. LISINOPRIL (UNKNOWN) [Suspect]
     Indication: HYPERTENSION
     Dosage: 10 MG, DAILY
     Route: 064
  2. METHYLDOPA [Concomitant]
     Indication: HYPERTENSION
     Dosage: 500 MG, DAILY
     Route: 065

REACTIONS (12)
  - Renal failure neonatal [Recovered/Resolved]
  - Congenital nose malformation [Recovered/Resolved]
  - Retrognathia [Recovered/Resolved]
  - Anomaly of external ear congenital [Recovered/Resolved]
  - Delayed fontanelle closure [Recovered/Resolved]
  - Cranial sutures widening [Recovered/Resolved]
  - Microcephaly [Recovered/Resolved]
  - Hypertonia neonatal [Recovered/Resolved]
  - Blood antidiuretic hormone decreased [Recovered/Resolved]
  - Enuresis [Not Recovered/Not Resolved]
  - Neonatal hypotension [Recovered/Resolved]
  - Foetal exposure during pregnancy [Recovered/Resolved]
